FAERS Safety Report 10232931 (Version 1)
Quarter: 2014Q2

REPORT INFORMATION
  Report Type: Spontaneous
  Country: FR (occurrence: FR)
  Receive Date: 20140612
  Receipt Date: 20140612
  Transmission Date: 20141212
  Serious: Yes (Other)
  Sender: FDA-Public Use
  Company Number: FR-PFIZER INC-2014157145

PATIENT
  Age: 66 Year
  Sex: 0

DRUGS (6)
  1. IRINOTECAN HCL [Suspect]
     Indication: COLON CANCER METASTATIC
     Dosage: UNK
  2. FLUOROURACIL [Concomitant]
     Indication: COLON CANCER METASTATIC
     Dosage: UNK
  3. LEUCOVORIN [Concomitant]
     Indication: COLON CANCER METASTATIC
     Dosage: UNK
  4. METHYLPREDNISOLONE [Concomitant]
     Dosage: UNK
  5. ONDANSETRON [Concomitant]
     Dosage: UNK
  6. CALCIUM FOLINATE [Concomitant]
     Dosage: UNK

REACTIONS (3)
  - Anaphylactic reaction [Recovered/Resolved]
  - Pruritus [Recovered/Resolved]
  - Erythema [Recovered/Resolved]
